FAERS Safety Report 7804639-2 (Version None)
Quarter: 2011Q4

REPORT INFORMATION
  Report Type: 
  Country: None (occurrence: None)
  Receive Date: 20111010
  Receipt Date: 20111006
  Transmission Date: 20120403
  Serious: No
  Sender: FDA-Public Use
  Company Number: US-PFIZER INC-2011179473

PATIENT
  Sex: Female
  Weight: 57.143 kg

DRUGS (5)
  1. CHANTIX [Suspect]
     Indication: SMOKING CESSATION THERAPY
     Dosage: 0.5 MG, DAILY
     Route: 048
     Dates: start: 20110101
  2. CALCIUM [Concomitant]
     Indication: OSTEOPENIA
     Dosage: 600 MG, UNK
  3. CHANTIX [Suspect]
     Dosage: UNK
     Route: 048
     Dates: end: 20110804
  4. PIROXICAM [Concomitant]
     Indication: ARTHRITIS
     Dosage: 20 MG, UNK
  5. VITAMIN D [Concomitant]
     Indication: OSTEOPENIA
     Dosage: 1000 MG, UNK

REACTIONS (2)
  - SOMNOLENCE [None]
  - LAZINESS [None]
